FAERS Safety Report 7668970-6 (Version None)
Quarter: 2011Q3

REPORT INFORMATION
  Report Type: 
  Country: None (occurrence: None)
  Receive Date: 20110808
  Receipt Date: 20110706
  Transmission Date: 20111222
  Serious: Yes (Hospitalization)
  Sender: FDA-Public Use
  Company Number: JP-GLAXOSMITHKLINE-B0731624A

PATIENT
  Sex: Female

DRUGS (3)
  1. LULLAN [Concomitant]
     Indication: INSOMNIA
     Route: 048
     Dates: start: 20100401
  2. DOGMATYL [Concomitant]
     Indication: DECREASED APPETITE
     Dosage: 100MG PER DAY
     Route: 048
     Dates: start: 20101129, end: 20110113
  3. LAMICTAL [Suspect]
     Indication: BIPOLAR DISORDER
     Dosage: 200MG PER DAY
     Route: 048
     Dates: start: 20100601

REACTIONS (6)
  - SOMNOLENCE [None]
  - SOMATIC HALLUCINATION [None]
  - MALAISE [None]
  - ORAL DISCOMFORT [None]
  - SPEECH DISORDER [None]
  - ILL-DEFINED DISORDER [None]
